FAERS Safety Report 7055331-6 (Version None)
Quarter: 2010Q4

REPORT INFORMATION
  Report Type: 
  Country: None (occurrence: None)
  Receive Date: 20101021
  Receipt Date: 20101011
  Transmission Date: 20110411
  Serious: Yes (Other)
  Sender: FDA-Public Use
  Company Number: DE-NAPPMUNDI-DEU-2010-0006637

PATIENT
  Age: 42 Year
  Sex: Male

DRUGS (3)
  1. MORPHINE SULFATE INJECTABLE [Suspect]
     Indication: PAIN
     Dosage: 8 MG, DAILY
     Route: 037
  2. MORPHINE SULFATE INJECTABLE [Interacting]
     Dosage: 9.5 MG, DAILY
     Route: 037
  3. CLONIDINE [Interacting]
     Indication: PRODUCT USED FOR UNKNOWN INDICATION
     Dosage: 0.3 MG, DAILY
     Route: 037

REACTIONS (2)
  - DRUG WITHDRAWAL SYNDROME [None]
  - POTENTIATING DRUG INTERACTION [None]
